FAERS Safety Report 7733738-9 (Version None)
Quarter: 2011Q3

REPORT INFORMATION
  Report Type: 
  Country: None (occurrence: None)
  Receive Date: 20110907
  Receipt Date: 20110830
  Transmission Date: 20111222
  Serious: Yes (Hospitalization)
  Sender: FDA-Public Use
  Company Number: FR-SANOFI-AVENTIS-2011SA055476

PATIENT
  Age: 73 Year
  Sex: Female

DRUGS (2)
  1. FLUOROURACIL [Suspect]
     Dosage: 1500 MG/M2 / CYCLE DOSE:50 MILLIGRAM(S)/MILLILITRE
     Route: 042
     Dates: start: 20110615, end: 20110616
  2. OXALIPLATIN [Suspect]
     Dosage: 85 MG/M2 / CYCLE
     Route: 042
     Dates: start: 20110615, end: 20110616

REACTIONS (1)
  - CONFUSIONAL STATE [None]
